FAERS Safety Report 20382407 (Version 1)
Quarter: 2022Q1

REPORT INFORMATION
  Report Type: Spontaneous
  Country: GB (occurrence: GB)
  Receive Date: 20220127
  Receipt Date: 20220127
  Transmission Date: 20220423
  Serious: Yes (Other)
  Sender: FDA-Public Use
  Company Number: None

PATIENT
  Age: 65 Year
  Sex: Female

DRUGS (6)
  1. PREGABALIN [Suspect]
     Active Substance: PREGABALIN
     Indication: Restless legs syndrome
     Dosage: 300 MG DAILY ON DAY 1
     Route: 048
     Dates: start: 20211208
  2. PREGABALIN [Suspect]
     Active Substance: PREGABALIN
     Dosage: 300 MG TWICE A DAY ON DAY 2
     Route: 048
     Dates: start: 20211209
  3. PREGABALIN [Suspect]
     Active Substance: PREGABALIN
     Dosage: 300 MG THREE TIMES A DAY ON DAY 3 AND THEREAFTER
     Route: 048
     Dates: start: 20211210, end: 20211210
  4. OMEPRAZOLE [Concomitant]
     Active Substance: OMEPRAZOLE
     Indication: Ill-defined disorder
  5. CODEINE [Concomitant]
     Active Substance: CODEINE
     Indication: Ill-defined disorder
  6. PRAMIPEXOLE [Concomitant]
     Active Substance: PRAMIPEXOLE
     Indication: Ill-defined disorder

REACTIONS (2)
  - Loss of consciousness [Recovered/Resolved]
  - Medication error [Unknown]
